FAERS Safety Report 4335233-6 (Version None)
Quarter: 2004Q2

REPORT INFORMATION
  Report Type: 
  Country: None (occurrence: None)
  Receive Date: 20040406
  Receipt Date: 20031216
  Transmission Date: 20050107
  Serious: Yes (Other)
  Sender: FDA-Public Use
  Company Number: 354325

PATIENT
  Age: 40 Year
  Sex: Male
  Weight: 90.7 kg

DRUGS (3)
  1. FUZEON [Suspect]
     Dosage: 90 MG  2 PER DAY  SUBCUTANEOUS
     Route: 058
     Dates: start: 20030603
  2. SUSTIVA [Concomitant]
  3. VIRACEPT [Concomitant]

REACTIONS (6)
  - ABDOMINAL DISTENSION [None]
  - ABDOMINAL PAIN [None]
  - ABDOMINAL REBOUND TENDERNESS [None]
  - CONSTIPATION [None]
  - INFLAMMATION [None]
  - PANCREATIC DISORDER [None]
